FAERS Safety Report 4746476-1 (Version None)
Quarter: 2005Q3

REPORT INFORMATION
  Report Type: 
  Country: None (occurrence: None)
  Receive Date: 20050815
  Receipt Date: 20050727
  Transmission Date: 20060218
  Serious: Yes (Death)
  Sender: FDA-Public Use
  Company Number: WAES 0507NLD00012

PATIENT
  Sex: Female

DRUGS (2)
  1. DECADRON [Suspect]
     Dosage: 12 MG/DAILY
     Route: 048
  2. TEMOZOLOMIDE [Concomitant]

REACTIONS (1)
  - CANDIDA PNEUMONIA [None]
